FAERS Safety Report 5008809-0 (Version None)
Quarter: 2006Q2

REPORT INFORMATION
  Report Type: 
  Country: None (occurrence: None)
  Receive Date: 20060523
  Receipt Date: 20060511
  Transmission Date: 20061013
  Serious: Yes (Hospitalization)
  Sender: FDA-Public Use
  Company Number: CH-SANOFI-SYNTHELABO-A01200603564

PATIENT
  Age: 76 Year
  Sex: Male

DRUGS (4)
  1. MOVICOL [Concomitant]
     Indication: DRUG USE FOR UNKNOWN INDICATION
     Route: 048
  2. NORVASC [Concomitant]
     Indication: DRUG USE FOR UNKNOWN INDICATION
     Route: 048
  3. ASPIRIN [Suspect]
     Indication: DRUG USE FOR UNKNOWN INDICATION
     Route: 048
     Dates: end: 20051119
  4. PLAVIX [Suspect]
     Indication: DRUG USE FOR UNKNOWN INDICATION
     Route: 048
     Dates: end: 20051119

REACTIONS (13)
  - ACUTE PULMONARY OEDEMA [None]
  - ANAEMIA [None]
  - ATRIOVENTRICULAR BLOCK COMPLETE [None]
  - CALCULUS URINARY [None]
  - CARDIAC ARREST [None]
  - HAEMORRHAGE URINARY TRACT [None]
  - HYDRONEPHROSIS [None]
  - HYPOVOLAEMIC SHOCK [None]
  - HYPOXIA [None]
  - PULMONARY OEDEMA [None]
  - RENAL FAILURE ACUTE [None]
  - RENAL HAEMORRHAGE [None]
  - VENTRICULAR TACHYCARDIA [None]
